FAERS Safety Report 7273253-2 (Version None)
Quarter: 2011Q1

REPORT INFORMATION
  Report Type: 
  Country: None (occurrence: None)
  Receive Date: 20110203
  Receipt Date: 20110127
  Transmission Date: 20110831
  Serious: Yes (Other)
  Sender: FDA-Public Use
  Company Number: US-US-EMD SERONO, INC.-233904K09USA

PATIENT
  Sex: Female
  Weight: 93 kg

DRUGS (5)
  1. REBIF [Suspect]
     Indication: MULTIPLE SCLEROSIS
     Route: 058
     Dates: start: 20070616, end: 20090401
  2. REBIF [Suspect]
     Route: 058
     Dates: start: 20090411
  3. PROVIGIL [Concomitant]
     Indication: FATIGUE
     Route: 065
     Dates: start: 20080101, end: 20090401
  4. STEROIDS [Concomitant]
     Route: 042
     Dates: start: 20081201
  5. STEROIDS [Concomitant]
     Indication: MULTIPLE SCLEROSIS RELAPSE
     Route: 048
     Dates: start: 20080901, end: 20080901

REACTIONS (2)
  - VENTRICULAR EXTRASYSTOLES [None]
  - SUPRAVENTRICULAR EXTRASYSTOLES [None]
